FAERS Safety Report 6180271-4 (Version None)
Quarter: 2009Q2

REPORT INFORMATION
  Report Type: 
  Country: None (occurrence: None)
  Receive Date: 20090501
  Receipt Date: 20090422
  Transmission Date: 20091009
  Serious: Yes (Life-Threatening, Other)
  Sender: FDA-Public Use
  Company Number: 252561

PATIENT
  Age: 35 Year
  Sex: Female

DRUGS (8)
  1. ONDANSETRON [Suspect]
     Indication: MAINTENANCE OF ANAESTHESIA
     Dosage: 4 MG, UNKNOWN, INTRAVENOUS
     Route: 042
  2. COCAINE [Concomitant]
     Indication: INDUCTION OF ANAESTHESIA
     Dosage: 1 ML (250MG), TOPICAL
     Route: 061
  3. LIDOCAINE W/ EPINEPHRINE /00178501/ [Concomitant]
     Indication: MAINTENANCE OF ANAESTHESIA
     Dosage: 5 MG, UNKNOWN, INTRANASAL
  4. FENTANYL [Concomitant]
  5. PROPOFOL [Concomitant]
  6. NITROUS OXIDE [Concomitant]
  7. DICLOFENAC [Concomitant]
  8. SEVOFLURANE [Concomitant]

REACTIONS (8)
  - APNOEA [None]
  - BLOOD CALCIUM DECREASED [None]
  - BLOOD MAGNESIUM DECREASED [None]
  - BLOOD POTASSIUM DECREASED [None]
  - CARDIAC ARREST [None]
  - LONG QT SYNDROME [None]
  - VENTRICULAR FIBRILLATION [None]
  - VENTRICULAR TACHYCARDIA [None]
